FAERS Safety Report 7579947-3 (Version None)
Quarter: 2011Q2

REPORT INFORMATION
  Report Type: 
  Country: None (occurrence: None)
  Receive Date: 20110629
  Receipt Date: 20110606
  Transmission Date: 20111010
  Serious: Yes (Other)
  Sender: FDA-Public Use
  Company Number: JP-SANOFI-AVENTIS-2011SA036175

PATIENT
  Sex: Male

DRUGS (2)
  1. APIDRA [Suspect]
  2. SOLOSTAR [Suspect]

REACTIONS (1)
  - DEVICE MALFUNCTION [None]
